FAERS Safety Report 10427812 (Version 1)
Quarter: 2014Q3

REPORT INFORMATION
  Report Type: Spontaneous
  Country: US (occurrence: None)
  Receive Date: 20140902
  Receipt Date: 20140902
  Transmission Date: 20150326
  Serious: Yes (Other)
  Sender: FDA-Public Use
  Company Number: None

PATIENT
  Age: 53 Year
  Sex: Female

DRUGS (1)
  1. ULTRAM ER [Suspect]
     Active Substance: TRAMADOL HYDROCHLORIDE
     Dosage: 3-4 TIMES TOTAL
     Route: 048

REACTIONS (5)
  - No therapeutic response [None]
  - Urticaria [None]
  - Discomfort [None]
  - Rash [None]
  - Pruritus [None]

NARRATIVE: CASE EVENT DATE: 20140828
